FAERS Safety Report 4875358-X (Version None)
Quarter: 2006Q1

REPORT INFORMATION
  Report Type: 
  Country: None (occurrence: None)
  Receive Date: 20060109
  Receipt Date: 20051005
  Transmission Date: 20060701
  Serious: Yes (Death, Hospitalization)
  Sender: FDA-Public Use
  Company Number: US-MERCK-0510USA04172

PATIENT
  Age: 82 Year
  Sex: Female
  Weight: 62 kg

DRUGS (9)
  1. VIOXX [Suspect]
     Indication: SHOULDER PAIN
     Route: 048
     Dates: start: 20040209, end: 20051012
  2. SYNTHROID [Concomitant]
     Route: 065
  3. REMERON [Concomitant]
     Route: 065
  4. ASPIRIN [Concomitant]
     Route: 065
  5. DETROL LA [Concomitant]
     Route: 065
  6. KAY CIEL DURA-TABS [Concomitant]
     Route: 065
  7. LASIX [Concomitant]
     Route: 065
  8. ALBUTEROL [Concomitant]
     Route: 065
  9. ATROVENT [Concomitant]
     Route: 065

REACTIONS (5)
  - CEREBROVASCULAR ACCIDENT [None]
  - CONTUSION [None]
  - DEATH [None]
  - HAEMATOMA [None]
  - MYOCARDIAL INFARCTION [None]
